FAERS Safety Report 5246476-1 (Version None)
Quarter: 2007Q1

REPORT INFORMATION
  Report Type: 
  Country: None (occurrence: None)
  Receive Date: 20070216
  Receipt Date: 20070131
  Transmission Date: 20070707
  Serious: Yes (Hospitalization)
  Sender: FDA-Public Use
  Company Number: 233160

PATIENT
  Age: 91 Year
  Sex: Female

DRUGS (3)
  1. RANIBIZUMAB (RANIBIZUMAB) PWDER + SOLVENT, INJECTION SOLN [Suspect]
     Indication: MACULAR DEGENERATION
     Dosage: INTRAVITREAL
     Dates: start: 20060609
  2. LASIX [Concomitant]
  3. LANOXIN [Concomitant]

REACTIONS (6)
  - BLOOD CREATINE INCREASED [None]
  - BLOOD UREA INCREASED [None]
  - BRADYCARDIA [None]
  - CARDIAC FAILURE CONGESTIVE [None]
  - HAEMOGLOBIN DECREASED [None]
  - INTERNATIONAL NORMALISED RATIO INCREASED [None]
